FAERS Safety Report 8972255 (Version 1)
Quarter: 2012Q4

REPORT INFORMATION
  Report Type: 
  Country: DE (occurrence: DE)
  Receive Date: 20121219
  Receipt Date: 20121219
  Transmission Date: 20130627
  Serious: Yes (Other)
  Sender: FDA-Public Use
  Company Number: DE-JNJFOC-20121206377

PATIENT
  Age: 76 Year
  Sex: Male
  Weight: 73 kg

DRUGS (2)
  1. XARELTO [Suspect]
     Indication: THROMBOSIS PROPHYLAXIS
     Dosage: cumulative dose: 120mg
     Route: 048
     Dates: start: 20120405, end: 20120416
  2. XARELTO [Suspect]
     Indication: KNEE ARTHROPLASTY
     Dosage: cumulative dose: 120mg
     Route: 048
     Dates: start: 20120405, end: 20120416

REACTIONS (2)
  - Platelet count increased [Recovered/Resolved]
  - Haemoglobin decreased [Recovered/Resolved]
